FAERS Safety Report 7203945-2 (Version None)
Quarter: 2010Q4

REPORT INFORMATION
  Report Type: 
  Country: None (occurrence: None)
  Receive Date: 20101230
  Receipt Date: 20101203
  Transmission Date: 20110411
  Serious: No
  Sender: FDA-Public Use
  Company Number: US-PFIZER INC-2010181184

PATIENT
  Age: 55 Year
  Sex: Female

DRUGS (1)
  1. AMIODARONE HCL [Suspect]
     Dosage: UNK
     Route: 065

REACTIONS (3)
  - ARTHRALGIA [None]
  - DYSPNOEA [None]
  - SENSATION OF HEAVINESS [None]
